FAERS Safety Report 25830154 (Version 1)
Quarter: 2025Q3

REPORT INFORMATION
  Report Type: Spontaneous
  Country: IL (occurrence: IL)
  Receive Date: 20250922
  Receipt Date: 20250922
  Transmission Date: 20251020
  Serious: Yes (Hospitalization)
  Sender: ACCORD
  Company Number: IL-SANDOZ-SDZ2025IL034640

PATIENT
  Age: 64 Year
  Sex: Female

DRUGS (4)
  1. GEMCITABINE [Suspect]
     Active Substance: GEMCITABINE
     Indication: Breast cancer metastatic
     Dates: start: 202204, end: 202204
  2. CARBOPLATIN [Concomitant]
     Active Substance: CARBOPLATIN
     Indication: Breast cancer metastatic
     Dates: start: 202204, end: 202204
  3. CARBOPLATIN [Concomitant]
     Active Substance: CARBOPLATIN
     Indication: Hormone receptor positive breast cancer
     Dates: start: 202204, end: 202204
  4. GEMCITABINE [Suspect]
     Active Substance: GEMCITABINE
     Indication: Hormone receptor positive breast cancer
     Dates: start: 202204, end: 202204

REACTIONS (2)
  - Pulmonary hypertension [Recovered/Resolved]
  - Right ventricular dysfunction [Recovered/Resolved]

NARRATIVE: CASE EVENT DATE: 20220401
